FAERS Safety Report 23765236 (Version 8)
Quarter: 2025Q1

REPORT INFORMATION
  Report Type: Spontaneous
  Country: US (occurrence: US)
  Receive Date: 20240420
  Receipt Date: 20250102
  Transmission Date: 20250408
  Serious: Yes (Other)
  Sender: BRISTOL-MYERS SQUIBB COMPANY
  Company Number: US-BRISTOL-MYERS SQUIBB COMPANY-2024-061898

PATIENT
  Age: 23 Year
  Sex: Female

DRUGS (6)
  1. SPRYCEL [Suspect]
     Active Substance: DASATINIB
     Indication: Chronic myeloid leukaemia
     Route: 048
     Dates: start: 202202
  2. SPRYCEL [Suspect]
     Active Substance: DASATINIB
     Route: 048
     Dates: start: 202202
  3. SPRYCEL [Suspect]
     Active Substance: DASATINIB
     Route: 048
     Dates: start: 202201
  4. SPRYCEL [Suspect]
     Active Substance: DASATINIB
     Route: 048
     Dates: start: 202202
  5. SPRYCEL [Suspect]
     Active Substance: DASATINIB
     Route: 048
  6. SPRYCEL [Suspect]
     Active Substance: DASATINIB
     Route: 048
     Dates: start: 202202

REACTIONS (15)
  - Myalgia [Unknown]
  - Muscular weakness [Not Recovered/Not Resolved]
  - Mental disorder [Unknown]
  - Depression [Unknown]
  - Insomnia [Unknown]
  - Pain [Unknown]
  - Nausea [Unknown]
  - Diarrhoea [Unknown]
  - Fatigue [Unknown]
  - Fall [Unknown]
  - Neuropathy peripheral [Unknown]
  - Vomiting [Unknown]
  - Feeding disorder [Unknown]
  - Asthenia [Unknown]
  - Coordination abnormal [Unknown]

NARRATIVE: CASE EVENT DATE: 20240813
